FAERS Safety Report 8558700-8 (Version None)
Quarter: 2012Q3

REPORT INFORMATION
  Report Type: 
  Country: None (occurrence: None)
  Receive Date: 20120801
  Receipt Date: 20120725
  Transmission Date: 20120928
  Serious: Yes (Other)
  Sender: FDA-Public Use
  Company Number: JP-ABBOTT-12P-087-0915655-00

PATIENT
  Sex: Male
  Weight: 56 kg

DRUGS (14)
  1. PREDNISOLONE [Concomitant]
     Dates: start: 20090331, end: 20110509
  2. PREDNISOLONE [Concomitant]
     Dates: start: 20120511
  3. MELOXICAM [Concomitant]
     Indication: RHEUMATOID ARTHRITIS
     Dosage: 10MG DAILY
     Route: 048
     Dates: start: 20090330
  4. PREDNISOLONE [Concomitant]
     Indication: RHEUMATOID ARTHRITIS
     Dates: start: 20070227, end: 20070820
  5. PREDNISOLONE [Concomitant]
     Route: 048
     Dates: start: 20070821, end: 20071015
  6. PREDNISOLONE [Concomitant]
     Dates: start: 20071016, end: 20080331
  7. PREDNISOLONE [Concomitant]
     Dates: start: 20110510, end: 20120510
  8. LOXOPROFEN SODIUM HYDRATE [Concomitant]
     Indication: RHEUMATOID ARTHRITIS
     Route: 048
     Dates: start: 20070227
  9. RABEPRAZOLE SODIUM [Concomitant]
     Indication: RHEUMATOID ARTHRITIS
     Dosage: 10MG DAILY
     Route: 048
     Dates: start: 20090330
  10. BETAMETHASONE VALERIATE W/GENTAMICIN SULFATE [Concomitant]
     Indication: DERMATITIS
     Dates: start: 20090616, end: 20090831
  11. HUMIRA [Suspect]
     Indication: RHEUMATOID ARTHRITIS
     Route: 058
     Dates: start: 20120216, end: 20120304
  12. PREDNISOLONE [Concomitant]
     Dates: start: 20080401, end: 20090530
  13. REBAMIPIDE [Concomitant]
     Indication: RHEUMATOID ARTHRITIS
     Route: 048
     Dates: start: 20070227
  14. RHEUMATREX [Suspect]
     Indication: RHEUMATOID ARTHRITIS
     Dosage: 6 MG/WEEK
     Dates: start: 20070227

REACTIONS (5)
  - PYREXIA [None]
  - ATYPICAL MYCOBACTERIAL INFECTION [None]
  - PRODUCTIVE COUGH [None]
  - MALAISE [None]
  - CHEST X-RAY ABNORMAL [None]
